FAERS Safety Report 4713011-3 (Version None)
Quarter: 2005Q3

REPORT INFORMATION
  Report Type: 
  Country: None (occurrence: None)
  Receive Date: 20050711
  Receipt Date: 20050628
  Transmission Date: 20060218
  Serious: Yes (Disabling, Other)
  Sender: FDA-Public Use
  Company Number: 2005084797

PATIENT
  Age: 73 Year
  Sex: Male
  Weight: 64.5 kg

DRUGS (6)
  1. LIPITOR [Suspect]
     Indication: ILL-DEFINED DISORDER
     Dosage: 10 MG (10 MG, 1 IN 1 D), ORAL
     Route: 048
     Dates: start: 20050510
  2. CITALOPRAM (CITALOPRAM) [Concomitant]
  3. LITHIUM CARBONATE [Concomitant]
  4. AMISULPRIDE (AMISULPRIDE) [Concomitant]
  5. NOVOMX (INSULIN ASPART) [Concomitant]
  6. LANTUS [Concomitant]

REACTIONS (4)
  - ACTIVITIES OF DAILY LIVING IMPAIRED [None]
  - APATHY [None]
  - DEPRESSION [None]
  - DISTURBANCE IN ATTENTION [None]
